FAERS Safety Report 24466581 (Version 1)
Quarter: 2024Q4

REPORT INFORMATION
  Report Type: Report from Study
  Country: US (occurrence: US)
  Receive Date: 20241018
  Receipt Date: 20241018
  Transmission Date: 20250115
  Serious: No
  Sender: ROCHE
  Company Number: US-ROCHE-3546916

PATIENT
  Age: 76 Year
  Sex: Female
  Weight: 68.9 kg

DRUGS (3)
  1. XOLAIR [Suspect]
     Active Substance: OMALIZUMAB
     Indication: Chronic spontaneous urticaria
     Dosage: LAST DOSE WAS ON 15/APR/2024.
     Route: 058
     Dates: start: 20210510
  2. XOLAIR [Suspect]
     Active Substance: OMALIZUMAB
  3. HYDROCHLOROTHIAZIDE [Concomitant]
     Active Substance: HYDROCHLOROTHIAZIDE
     Indication: Product used for unknown indication
     Dosage: UNKNOWN
     Route: 065

REACTIONS (1)
  - Fall [Unknown]

NARRATIVE: CASE EVENT DATE: 20240305
